FAERS Safety Report 13360666 (Version 12)
Quarter: 2020Q2

REPORT INFORMATION
  Report Type: Spontaneous
  Country: US (occurrence: US)
  Receive Date: 20170322
  Receipt Date: 20200528
  Transmission Date: 20200713
  Serious: Yes (Hospitalization)
  Sender: FDA-Public Use
  Company Number: US-ACTELION-A-US2016-145220

PATIENT
  Age: 38 Year
  Sex: Female
  Weight: 69.39 kg

DRUGS (5)
  1. AMLODIPINE [Concomitant]
     Active Substance: AMLODIPINE BESYLATE
  2. VELETRI [Suspect]
     Active Substance: EPOPROSTENOL
     Indication: PULMONARY HYPERTENSION
     Dosage: 26 NG/KG, PER MIN
     Route: 042
  3. VELETRI [Suspect]
     Active Substance: EPOPROSTENOL
     Dosage: 20 NG/KG, PER MIN
     Route: 042
     Dates: start: 20161101
  4. VELETRI [Suspect]
     Active Substance: EPOPROSTENOL
     Dosage: UNK
     Route: 042
  5. OPSUMIT [Concomitant]
     Active Substance: MACITENTAN

REACTIONS (27)
  - Pyrexia [Unknown]
  - Device alarm issue [Unknown]
  - Oxygen saturation decreased [Unknown]
  - Urticaria [Unknown]
  - Loss of consciousness [Unknown]
  - Wrong technique in product usage process [Unknown]
  - Abdominal pain [Unknown]
  - Central venous catheterisation [Unknown]
  - Rash [Unknown]
  - Palpitations [Recovered/Resolved]
  - Product preparation error [Unknown]
  - Axillary vein thrombosis [Unknown]
  - Musculoskeletal pain [Unknown]
  - Catheter site pain [Unknown]
  - Erythema [Recovered/Resolved]
  - Device issue [Unknown]
  - Hospitalisation [Unknown]
  - Dyspnoea [Unknown]
  - Catheter site erythema [Unknown]
  - Hyperhidrosis [Recovered/Resolved]
  - Subclavian vein thrombosis [Unknown]
  - Headache [Unknown]
  - Upper respiratory tract infection [Unknown]
  - Flushing [Unknown]
  - Dizziness [Unknown]
  - Malaise [Unknown]
  - Skin discolouration [Unknown]

NARRATIVE: CASE EVENT DATE: 20181127
